FAERS Safety Report 20346923 (Version 23)
Quarter: 2022Q4

REPORT INFORMATION
  Report Type: Report from Study
  Country: DE (occurrence: DE)
  Receive Date: 20220118
  Receipt Date: 20221227
  Transmission Date: 20230112
  Serious: Yes (Other)
  Sender: FDA-Public Use
  Company Number: DE-PFM-2021-12409

PATIENT
  Age: 66 Year
  Sex: Female
  Weight: 55 kg

DRUGS (4)
  1. ENCORAFENIB [Suspect]
     Active Substance: ENCORAFENIB
     Indication: Malignant melanoma
     Dosage: 450 MG, 1X PER DAY
     Route: 048
     Dates: start: 20211117
  2. BINIMETINIB [Suspect]
     Active Substance: BINIMETINIB
     Indication: Malignant melanoma
     Dosage: 45 MG, BID (2/DAY)
     Route: 048
     Dates: start: 20211117
  3. CALCIUM [Concomitant]
     Active Substance: CALCIUM
     Dosage: UNK
     Route: 065
     Dates: start: 20211213
  4. ZOMETA [Concomitant]
     Active Substance: ZOLEDRONIC ACID
     Indication: Metastases to bone
     Dosage: UNK
     Route: 065
     Dates: start: 20211221

REACTIONS (27)
  - Lower gastrointestinal haemorrhage [Recovered/Resolved]
  - Left ventricular dysfunction [Recovered/Resolved]
  - Hypokalaemia [Recovered/Resolved]
  - Hypomagnesaemia [Recovered/Resolved]
  - Nausea [Recovered/Resolved]
  - Fatigue [Recovering/Resolving]
  - Constipation [Recovered/Resolved]
  - Alanine aminotransferase increased [Recovered/Resolved]
  - Alanine aminotransferase increased [Recovered/Resolved]
  - Alanine aminotransferase increased [Not Recovered/Not Resolved]
  - Osteoarthritis [Recovered/Resolved]
  - Hyperglycaemia [Recovered/Resolved]
  - Blood creatine phosphokinase increased [Recovered/Resolved]
  - Blood lactate dehydrogenase increased [Recovered/Resolved]
  - Dyspnoea [Recovering/Resolving]
  - Hypomagnesaemia [Recovered/Resolved]
  - Glomerular filtration rate decreased [Recovered/Resolved]
  - Urinary tract infection [Recovered/Resolved]
  - Glomerular filtration rate decreased [Recovered/Resolved]
  - Glomerular filtration rate decreased [Recovered/Resolved]
  - Glomerular filtration rate decreased [Recovered/Resolved]
  - Blood creatinine increased [Recovered/Resolved]
  - Blood creatinine increased [Recovered/Resolved]
  - Glomerular filtration rate decreased [Recovered/Resolved]
  - Blood creatine phosphokinase increased [Recovered/Resolved]
  - Blood creatinine increased [Recovering/Resolving]
  - Blood lactate dehydrogenase increased [Recovered/Resolved]

NARRATIVE: CASE EVENT DATE: 20211119
